FAERS Safety Report 9055777 (Version 1)
Quarter: 2013Q1

REPORT INFORMATION
  Report Type: Spontaneous
  Country: US (occurrence: US)
  Receive Date: 20130206
  Receipt Date: 20130206
  Transmission Date: 20140127
  Serious: No
  Sender: FDA-Public Use
  Company Number: US-009507513-1302USA001632

PATIENT
  Age: 15 Year
  Sex: Female

DRUGS (1)
  1. IMPLANON [Suspect]
     Indication: CONTRACEPTION
     Dosage: 3 YEARS IMPLANT
     Route: 059
     Dates: start: 201212

REACTIONS (3)
  - Metrorrhagia [Unknown]
  - Nausea [Unknown]
  - Vomiting [Unknown]
